FAERS Safety Report 9747705 (Version 4)
Quarter: 2014Q1

REPORT INFORMATION
  Report Type: Spontaneous
  Country: DE (occurrence: DE)
  Receive Date: 20131212
  Receipt Date: 20140210
  Transmission Date: 20141002
  Serious: Yes (Death, Other)
  Sender: FDA-Public Use
  Company Number: DE-BAYER-2013-147032

PATIENT
  Age: 96 Year
  Sex: Male

DRUGS (4)
  1. AVALOX [Suspect]
     Indication: BRONCHOPNEUMONIA
     Dosage: UNK
     Dates: start: 20131112
  2. XARELTO [Concomitant]
     Indication: ATRIAL FIBRILLATION
     Dosage: UNK
     Dates: start: 201307
  3. XARELTO [Concomitant]
     Indication: CEREBROVASCULAR ACCIDENT PROPHYLAXIS
  4. TAVANIC [Concomitant]
     Indication: URINARY TRACT INFECTION
     Dosage: UNK

REACTIONS (15)
  - Death [Fatal]
  - Medication error [None]
  - Eating disorder [None]
  - Abdominal pain upper [None]
  - Muscle spasms [None]
  - Stomatitis [None]
  - Diplopia [None]
  - Dysstasia [None]
  - Balance disorder [None]
  - Tachycardia [None]
  - Tremor [None]
  - Ocular icterus [None]
  - Skin discolouration [None]
  - Cyanosis [None]
  - Diplopia [None]
